FAERS Safety Report 23377451 (Version 1)
Quarter: 2024Q1

REPORT INFORMATION
  Report Type: Spontaneous
  Country: US (occurrence: US)
  Receive Date: 20240108
  Receipt Date: 20240108
  Transmission Date: 20240409
  Serious: Yes (Hospitalization, Other)
  Sender: FDA-Public Use
  Company Number: US-SANOFI-01893266

PATIENT
  Age: 51 Year
  Sex: Female

DRUGS (1)
  1. TOUJEO [Suspect]
     Active Substance: INSULIN GLARGINE
     Indication: Type 1 diabetes mellitus
     Dosage: 45 IU, QD
     Dates: start: 2021

REACTIONS (6)
  - Coma [Unknown]
  - Bladder pain [Unknown]
  - Fall [Unknown]
  - Hip fracture [Unknown]
  - Gait disturbance [Unknown]
  - Pathogen resistance [Unknown]
